FAERS Safety Report 4372693-9 (Version None)
Quarter: 2004Q2

REPORT INFORMATION
  Report Type: 
  Country: None (occurrence: None)
  Receive Date: 20040526
  Receipt Date: 20040513
  Transmission Date: 20050107
  Serious: Yes (Hospitalization)
  Sender: FDA-Public Use
  Company Number: DE-JNJFOC-20040502786

PATIENT
  Age: 6 Year
  Sex: Male

DRUGS (3)
  1. DIPIPERON (PIPAMPERONE) [Suspect]
     Indication: ABNORMAL BEHAVIOUR
     Dosage: ORAL
     Route: 048
  2. RISPERDAL [Suspect]
     Indication: ABNORMAL BEHAVIOUR
     Dosage: ORAL
     Route: 048
  3. .. [Suspect]

REACTIONS (3)
  - DRUG INTERACTION [None]
  - GINGIVAL HYPERPLASIA [None]
  - TARDIVE DYSKINESIA [None]
